FAERS Safety Report 13260572 (Version 1)
Quarter: 2017Q1

REPORT INFORMATION
  Report Type: Report from Study
  Country: US (occurrence: US)
  Receive Date: 20170222
  Receipt Date: 20170222
  Transmission Date: 20170428
  Serious: Yes (Other)
  Sender: FDA-Public Use
  Company Number: US-CORCEPT THERAPEUTICS INC.-US-2017CRT000016

PATIENT

DRUGS (3)
  1. KORLYM [Suspect]
     Active Substance: MIFEPRISTONE
     Indication: CUSHING^S SYNDROME
     Dosage: 300 MG, QD
     Route: 048
     Dates: start: 201609, end: 201610
  2. KORLYM [Suspect]
     Active Substance: MIFEPRISTONE
     Indication: AUTOIMMUNE THYROIDITIS
  3. KORLYM [Suspect]
     Active Substance: MIFEPRISTONE
     Indication: VITAMIN D DEFICIENCY
     Dosage: 600 MG, QD
     Route: 048
     Dates: start: 201610, end: 201612

REACTIONS (5)
  - Lung disorder [Unknown]
  - Pancreatitis [Unknown]
  - Lymphadenopathy [Unknown]
  - Faecaloma [Unknown]
  - Splenomegaly [Unknown]

NARRATIVE: CASE EVENT DATE: 201612
